FAERS Safety Report 16060668 (Version 1)
Quarter: 2019Q1

REPORT INFORMATION
  Report Type: Spontaneous
  Country: JP (occurrence: JP)
  Receive Date: 20190312
  Receipt Date: 20190312
  Transmission Date: 20190418
  Serious: Yes (Hospitalization)
  Sender: FDA-Public Use
  Company Number: JP-UNITED THERAPEUTICS-UNT-2016-017777

PATIENT
  Age: 20 Year
  Sex: Female
  Weight: 45 kg

DRUGS (8)
  1. ADCIRCA [Concomitant]
     Active Substance: TADALAFIL
     Indication: PULMONARY ARTERIAL HYPERTENSION
     Dosage: UNK
     Route: 048
     Dates: start: 201310
  2. ACETAMINOPHEN. [Concomitant]
     Active Substance: ACETAMINOPHEN
     Indication: PULMONARY ARTERIAL HYPERTENSION
     Dosage: UNK
     Route: 048
     Dates: start: 20161120, end: 20161125
  3. REMODULIN [Suspect]
     Active Substance: TREPROSTINIL
     Dosage: 0.0104 ?G/KG, CONTINUING
     Route: 058
  4. REMODULIN [Suspect]
     Active Substance: TREPROSTINIL
     Dosage: 0.030 ?G/KG, CONTINUING
     Route: 058
  5. OPSUMIT [Concomitant]
     Active Substance: MACITENTAN
     Indication: PULMONARY ARTERIAL HYPERTENSION
     Dosage: UNK
     Route: 048
     Dates: start: 201508
  6. REMODULIN [Suspect]
     Active Substance: TREPROSTINIL
     Indication: PULMONARY ARTERIAL HYPERTENSION
     Dosage: 0.0084 ?G/KG, CONTINUING
     Route: 058
     Dates: start: 20161109
  7. REMODULIN [Suspect]
     Active Substance: TREPROSTINIL
     Dosage: 0.0116 ?G/KG, CONTINUING
     Route: 058
  8. TRAMCET [Concomitant]
     Active Substance: ACETAMINOPHEN\TRAMADOL
     Indication: PROPHYLAXIS
     Dosage: 4 DF PER DAY, UNK
     Route: 048
     Dates: start: 20161126

REACTIONS (28)
  - Vomiting [Recovering/Resolving]
  - Infusion site hypertrophy [Unknown]
  - Eye pain [Recovering/Resolving]
  - Infusion site discharge [Unknown]
  - Hot flush [Unknown]
  - Nausea [Recovering/Resolving]
  - Phlebitis [Unknown]
  - Infusion site pain [Not Recovered/Not Resolved]
  - Infusion site pruritus [Unknown]
  - Infusion site erosion [Unknown]
  - Infusion site haemorrhage [Unknown]
  - Flushing [Not Recovered/Not Resolved]
  - Infusion site scab [Unknown]
  - Infusion site scar [Unknown]
  - Infusion site infection [Recovered/Resolved]
  - Diarrhoea [Recovering/Resolving]
  - Infusion site erythema [Not Recovered/Not Resolved]
  - Infusion site induration [Not Recovered/Not Resolved]
  - Headache [Recovering/Resolving]
  - Device issue [Unknown]
  - Infusion site discolouration [Unknown]
  - Infusion site swelling [Unknown]
  - Depressed mood [Unknown]
  - Gastroenteritis [Recovered/Resolved]
  - Dyspnoea [Unknown]
  - Malaise [Not Recovered/Not Resolved]
  - Allergy to animal [Unknown]
  - Infusion site ulcer [Recovering/Resolving]

NARRATIVE: CASE EVENT DATE: 201611
